FAERS Safety Report 24555767 (Version 1)
Quarter: 2024Q4

REPORT INFORMATION
  Report Type: Spontaneous
  Country: US (occurrence: US)
  Receive Date: 20241028
  Receipt Date: 20241028
  Transmission Date: 20250115
  Serious: No
  Sender: ALEXION PHARMACEUTICALS
  Company Number: US-AstraZeneca-CH-00730896AP

PATIENT
  Age: 81 Year

DRUGS (1)
  1. BREZTRI [Suspect]
     Active Substance: BUDESONIDE\FORMOTEROL\GLYCOPYRROLATE
     Dosage: 160/9/4.8 MCG, 120 INHALATIONS

REACTIONS (4)
  - Dyspnoea [Unknown]
  - Device delivery system issue [Unknown]
  - Product dose omission issue [Unknown]
  - Wrong technique in device usage process [Unknown]
